FAERS Safety Report 9151613 (Version 2)
Quarter: 2013Q2

REPORT INFORMATION
  Report Type: Spontaneous
  Country: US (occurrence: US)
  Receive Date: 20130308
  Receipt Date: 20130423
  Transmission Date: 20140414
  Serious: Yes (Hospitalization)
  Sender: FDA-Public Use
  Company Number: US-INCYTE CORPORATION-2013IN000437

PATIENT
  Age: 77 Year
  Sex: Female

DRUGS (2)
  1. JAKAFI [Suspect]
     Indication: MYELOFIBROSIS
     Dosage: 15 MG, QOD
     Route: 048
     Dates: start: 20130212, end: 20130221
  2. JAKAFI [Suspect]
     Dosage: NOT SPECIFIED (SLOWLY INCREASING DOSES)
     Route: 048
     Dates: start: 20130302

REACTIONS (3)
  - Haematoma [Recovered/Resolved]
  - Haemoglobin decreased [Recovered/Resolved]
  - Contusion [Recovering/Resolving]
